FAERS Safety Report 5708035-3 (Version None)
Quarter: 2008Q2

REPORT INFORMATION
  Report Type: 
  Country: None (occurrence: None)
  Receive Date: 20080417
  Receipt Date: 20080404
  Transmission Date: 20081010
  Serious: Yes (Congenital Anomaly, Other)
  Sender: FDA-Public Use
  Company Number: US-AMGEN-US272985

PATIENT
  Sex: Female
  Weight: 68.1 kg

DRUGS (5)
  1. ENBREL [Suspect]
     Indication: RHEUMATOID ARTHRITIS
     Route: 058
     Dates: start: 20080107
  2. VITAMIN TAB [Concomitant]
     Dates: start: 20080205, end: 20080221
  3. FOLIC ACID [Concomitant]
     Dates: start: 20080107
  4. CENTRUM [Concomitant]
     Dates: start: 20080107
  5. TYLENOL (CAPLET) [Concomitant]
     Route: 048
     Dates: start: 20080107

REACTIONS (1)
  - TURNER'S SYNDROME [None]
